FAERS Safety Report 8415935-2 (Version None)
Quarter: 2012Q2

REPORT INFORMATION
  Report Type: 
  Country: None (occurrence: None)
  Receive Date: 20120606
  Receipt Date: 20120604
  Transmission Date: 20120825
  Serious: Yes (Death, Hospitalization, Other)
  Sender: FDA-Public Use
  Company Number: IT-BAYER-2012-044562

PATIENT
  Age: 59 Year
  Sex: Male

DRUGS (2)
  1. NEXAVAR [Suspect]
     Indication: HEPATIC NEOPLASM MALIGNANT
     Dosage: DAILY DOSE 800 MG
     Route: 048
     Dates: start: 20120216, end: 20120308
  2. NEXAVAR [Suspect]
     Dosage: DAILY DOSE 400 MG
     Route: 048
     Dates: start: 20120312, end: 20120326

REACTIONS (4)
  - ASCITES [None]
  - HYPOPHOSPHATAEMIA [None]
  - DIARRHOEA [None]
  - JAUNDICE [None]
